FAERS Safety Report 20754325 (Version 1)
Quarter: 2022Q2

REPORT INFORMATION
  Report Type: Spontaneous
  Country: US (occurrence: None)
  Receive Date: 20220426
  Receipt Date: 20220426
  Transmission Date: 20220720
  Serious: No
  Sender: FDA-Public Use
  Company Number: US-ROCHE-2929264

PATIENT
  Age: 71 Year
  Sex: Male
  Weight: 99.880 kg

DRUGS (5)
  1. ESBRIET [Suspect]
     Active Substance: PIRFENIDONE
     Indication: Idiopathic pulmonary fibrosis
     Dosage: ONGOING-YES
     Route: 048
     Dates: start: 202104
  2. ESBRIET [Suspect]
     Active Substance: PIRFENIDONE
     Indication: Lung disorder
     Dosage: ONGOING-YES
     Route: 048
     Dates: start: 2021
  3. ESBRIET [Suspect]
     Active Substance: PIRFENIDONE
     Dosage: ONGOING-YES
     Route: 048
     Dates: start: 20210415
  4. ZANTAC [Concomitant]
     Active Substance: RANITIDINE HYDROCHLORIDE
     Indication: Gastric disorder
     Dosage: ONGOING-YES
     Route: 048
  5. IMODIUM [Concomitant]
     Active Substance: LOPERAMIDE HYDROCHLORIDE

REACTIONS (6)
  - Vomiting [Unknown]
  - Nausea [Unknown]
  - Diarrhoea [Unknown]
  - Dyspepsia [Not Recovered/Not Resolved]
  - Abdominal pain upper [Not Recovered/Not Resolved]
  - Product dose omission issue [Unknown]

NARRATIVE: CASE EVENT DATE: 20210901
